FAERS Safety Report 7228482-0 (Version None)
Quarter: 2011Q1

REPORT INFORMATION
  Report Type: 
  Country: None (occurrence: None)
  Receive Date: 20110114
  Receipt Date: 20110111
  Transmission Date: 20110831
  Serious: Yes (Hospitalization)
  Sender: FDA-Public Use
  Company Number: JP-GENENTECH-310447

PATIENT
  Sex: Male

DRUGS (16)
  1. MYSLEE [Concomitant]
     Indication: INSOMNIA
     Dosage: 5 MG, QD
     Route: 048
  2. PREDNISOLONE [Suspect]
     Indication: NON-HODGKIN'S LYMPHOMA
     Dosage: 40 MG, UNK
     Route: 048
     Dates: start: 20100823
  3. PIRARUBICIN HYDROCHLORIDE [Suspect]
     Indication: NON-HODGKIN'S LYMPHOMA
     Dosage: 20 MG, UNK
     Route: 042
     Dates: start: 20100823
  4. HALFDIGOXIN KY [Concomitant]
     Indication: CARDIAC FAILURE
     Dosage: 0.125 MG, QD
     Route: 048
  5. MAGMITT [Concomitant]
     Indication: CONSTIPATION
     Dosage: 990 MG, QD
     Route: 048
  6. PIRARUBICIN HYDROCHLORIDE [Suspect]
     Dosage: 20 MG, UNK
     Route: 042
     Dates: start: 20100917
  7. CYCLOPHOSPHAMIDE [Suspect]
     Dosage: 350 MG, UNK
     Route: 042
     Dates: start: 20100917
  8. SOLU-CORTEF [Concomitant]
     Indication: PREMEDICATION
     Dosage: 100 MG, SINGLE
     Route: 042
     Dates: start: 20100913, end: 20100913
  9. ALDACTONE [Concomitant]
     Indication: CARDIAC FAILURE
     Dosage: 25 MG, QD
     Route: 048
  10. RITUXAN [Suspect]
     Indication: NON-HODGKIN'S LYMPHOMA
     Dosage: 500 MG, UNKNOWN
     Route: 042
     Dates: start: 20100913
  11. PREDNISOLONE [Suspect]
     Dosage: 40 MG, UNK
     Route: 048
     Dates: start: 20100917
  12. TAKEPRON [Concomitant]
     Indication: GASTRIC ULCER
     Dosage: 30 MG, QD
     Route: 048
  13. CYCLOPHOSPHAMIDE [Suspect]
     Indication: NON-HODGKIN'S LYMPHOMA
     Dosage: 350 MG, UNK
     Route: 042
     Dates: start: 20100823
  14. LASIX [Concomitant]
     Indication: CARDIAC FAILURE
     Dosage: 40 MG, QD
     Route: 048
  15. PURSENNID [Concomitant]
     Indication: CONSTIPATION
     Dosage: 12 MG, QD
     Route: 048
  16. RESLIN [Concomitant]
     Indication: INSOMNIA
     Dosage: 50 MG, QD
     Route: 048

REACTIONS (1)
  - PERICARDIAL EFFUSION [None]
